FAERS Safety Report 19301037 (Version 1)
Quarter: 2021Q2

REPORT INFORMATION
  Report Type: Spontaneous
  Country: US (occurrence: US)
  Receive Date: 20210524
  Receipt Date: 20210524
  Transmission Date: 20210717
  Serious: Yes (Hospitalization, Other)
  Sender: FDA-Public Use
  Company Number: US-GILEAD-2021-0532010

PATIENT
  Age: 41 Year
  Sex: Male

DRUGS (5)
  1. BIKTARVY [Suspect]
     Active Substance: BICTEGRAVIR SODIUM\EMTRICITABINE\TENOFOVIR ALAFENAMIDE FUMARATE
     Indication: HIV INFECTION
     Dosage: UNK
     Route: 065
  2. PREGABALIN. [Concomitant]
     Active Substance: PREGABALIN
     Indication: PAIN
  3. METHOCARBAMOL. [Concomitant]
     Active Substance: METHOCARBAMOL
  4. VALACYCLOVIR [Concomitant]
     Active Substance: VALACYCLOVIR HYDROCHLORIDE
  5. ENTECAVIR. [Concomitant]
     Active Substance: ENTECAVIR
     Indication: HIV INFECTION

REACTIONS (2)
  - Diabetic ketoacidosis [Recovered/Resolved]
  - Hyperglycaemia [Recovered/Resolved]
